FAERS Safety Report 15425425 (Version 1)
Quarter: 2018Q3

REPORT INFORMATION
  Report Type: Spontaneous
  Country: US (occurrence: US)
  Receive Date: 20180925
  Receipt Date: 20180925
  Transmission Date: 20181010
  Serious: Yes (Other)
  Sender: FDA-Public Use
  Company Number: US-BECTON DICKINSON-2018BDN00319

PATIENT
  Age: 32 Week
  Sex: Male
  Weight: 1.62 kg

DRUGS (1)
  1. POVIDONE?IODINE. [Suspect]
     Active Substance: POVIDONE-IODINE
     Indication: ANTIBIOTIC PROPHYLAXIS
     Route: 061

REACTIONS (2)
  - Thyroxine decreased [Unknown]
  - Urine iodine increased [Unknown]
